FAERS Safety Report 12252040 (Version 2)
Quarter: 2016Q2

REPORT INFORMATION
  Report Type: Spontaneous
  Country: US (occurrence: US)
  Receive Date: 20160411
  Receipt Date: 20160414
  Transmission Date: 20160815
  Serious: No
  Sender: FDA-Public Use
  Company Number: US-009507513-1604USA006208

PATIENT

DRUGS (1)
  1. ASMANEX HFA [Suspect]
     Active Substance: MOMETASONE FUROATE
     Dosage: 200 MICROGRAM, UNK
     Route: 048

REACTIONS (4)
  - No adverse event [Unknown]
  - Incorrect route of drug administration [Unknown]
  - Drug dose omission [Unknown]
  - Product quality issue [Unknown]
